FAERS Safety Report 6897329-4 (Version None)
Quarter: 2010Q3

REPORT INFORMATION
  Report Type: 
  Country: None (occurrence: None)
  Receive Date: 20100729
  Receipt Date: 20091227
  Transmission Date: 20110219
  Serious: Yes (Other)
  Sender: FDA-Public Use
  Company Number: GB-001290

PATIENT
  Age: 55 Year
  Sex: Male

DRUGS (13)
  1. SOMATROPIN (SOMATROPIN) INJECTION 10 MG [Suspect]
     Indication: HYPOPITUITARISM
     Dosage: 10 MG SUBCUTANEOUS
     Route: 057
  2. NEBIDO [Suspect]
     Indication: PRODUCT USED FOR UNKNOWN INDICATION
     Dates: start: 20071001
  3. ATORVASTATIN (ATORVASTATIN0 [Concomitant]
  4. CLOPIDOGREL [Concomitant]
  5. FENOFIBRATE [Concomitant]
  6. METFORMIN HCL [Concomitant]
  7. HEPARINOID (HEPARINOID) [Concomitant]
  8. INSULIN ASPART (INSULIN ASPART) [Concomitant]
  9. ROSIGLITAZONE MALEATE [Concomitant]
  10. SALBUTAMOL (SALBUTAMOL) RESPIRATORY (INHALATION) [Concomitant]
  11. SERETIDE RESPIRATORY (INHALATION) [Concomitant]
  12. VALSARTAN [Concomitant]
  13. VARDENAFIL (VARDENAFIL) [Concomitant]

REACTIONS (4)
  - BLOOD PRESSURE INCREASED [None]
  - BURNING SENSATION [None]
  - DYSGEUSIA [None]
  - HYPERHIDROSIS [None]
